FAERS Safety Report 10096778 (Version 1)
Quarter: 2014Q2

REPORT INFORMATION
  Report Type: Spontaneous
  Country: US (occurrence: US)
  Receive Date: 20140422
  Receipt Date: 20140422
  Transmission Date: 20141212
  Serious: Yes (Other)
  Sender: FDA-Public Use
  Company Number: CHPA2014US005568

PATIENT
  Sex: Female

DRUGS (2)
  1. VOLTAREN GEL [Suspect]
     Indication: MUSCULOSKELETAL PAIN
     Dosage: UNK
     Route: 061
     Dates: end: 20140418
  2. VOLTAREN GEL [Suspect]
     Indication: OFF LABEL USE

REACTIONS (3)
  - Dyspnoea [Recovered/Resolved]
  - Pain [Unknown]
  - Drug administered at inappropriate site [Unknown]
